FAERS Safety Report 7337444-4 (Version None)
Quarter: 2011Q1

REPORT INFORMATION
  Report Type: 
  Country: None (occurrence: None)
  Receive Date: 20110308
  Receipt Date: 20110224
  Transmission Date: 20110831
  Serious: Yes (Hospitalization)
  Sender: FDA-Public Use
  Company Number: US-AMGEN-USASP2011011239

PATIENT
  Age: 80 Year
  Sex: Male
  Weight: 67.12 kg

DRUGS (1)
  1. PROCRIT [Suspect]
     Indication: MYELODYSPLASTIC SYNDROME
     Dosage: 50000 IU, QWK
     Route: 058
     Dates: start: 19990101

REACTIONS (2)
  - PNEUMONIA [None]
  - PYREXIA [None]
